FAERS Safety Report 13438166 (Version 7)
Quarter: 2019Q3

REPORT INFORMATION
  Report Type: Report from Study
  Country: CA (occurrence: CA)
  Receive Date: 20170413
  Receipt Date: 20190828
  Transmission Date: 20191004
  Serious: Yes (Hospitalization, Other)
  Sender: FDA-Public Use
  Company Number: CA-BRISTOL-MYERS SQUIBB COMPANY-BMS-2017-010627

PATIENT
  Age: 85 Year
  Sex: Female

DRUGS (1)
  1. ABATACEPT [Suspect]
     Active Substance: ABATACEPT
     Indication: RHEUMATOID ARTHRITIS
     Dosage: 500 MG, Q4WK
     Route: 042
     Dates: start: 20120522, end: 20190703

REACTIONS (11)
  - Sinus congestion [Recovered/Resolved]
  - Biopsy [Unknown]
  - Respiratory tract congestion [Unknown]
  - Skin cancer [Recovered/Resolved]
  - Pulmonary congestion [Recovered/Resolved]
  - Viral infection [Unknown]
  - Malignant melanoma [Recovering/Resolving]
  - Neoplasm malignant [Unknown]
  - Nasopharyngitis [Recovered/Resolved]
  - Dysphonia [Unknown]
  - Cough [Recovered/Resolved]

NARRATIVE: CASE EVENT DATE: 20181214
